FAERS Safety Report 17440364 (Version 1)
Quarter: 2020Q1

REPORT INFORMATION
  Report Type: Spontaneous
  Country: US (occurrence: US)
  Receive Date: 20200220
  Receipt Date: 20200220
  Transmission Date: 20200409
  Serious: No
  Sender: FDA-Public Use
  Company Number: None

PATIENT
  Age: 26 Year
  Sex: Female
  Weight: 51.75 kg

DRUGS (1)
  1. OLD SPICE DEEP SEA WITH OCEAN ELEMENTS [Suspect]
     Active Substance: ALUMINUM ZIRCONIUM TETRACHLOROHYDREX GLY
     Route: 061
     Dates: start: 20200209, end: 20200219

REACTIONS (3)
  - Pain [None]
  - Rash erythematous [None]
  - Rash macular [None]

NARRATIVE: CASE EVENT DATE: 20200209
